FAERS Safety Report 20460848 (Version 1)
Quarter: 2022Q1

REPORT INFORMATION
  Report Type: Spontaneous
  Country: US (occurrence: None)
  Receive Date: 20220210
  Receipt Date: 20220210
  Transmission Date: 20220423
  Serious: Yes (Hospitalization)
  Sender: FDA-Public Use
  Company Number: None

PATIENT
  Age: 31 Year
  Sex: Female
  Weight: 85.7 kg

DRUGS (2)
  1. CEFTRIAXONE [Suspect]
     Active Substance: CEFTRIAXONE
     Indication: Mastoiditis
     Dosage: FREQUENCY : DAILY;?
     Route: 042
     Dates: start: 20220124, end: 20220205
  2. VANCOMYCIN [Suspect]
     Active Substance: VANCOMYCIN
     Indication: Mastoiditis
     Dosage: FREQUENCY : TWICE A DAY;?
     Route: 042
     Dates: start: 20220124

REACTIONS (2)
  - Rash [None]
  - Drug hypersensitivity [None]

NARRATIVE: CASE EVENT DATE: 20220205
